FAERS Safety Report 10615754 (Version 1)
Quarter: 2014Q4

REPORT INFORMATION
  Report Type: Report from Study
  Country: CA (occurrence: CA)
  Receive Date: 20141201
  Receipt Date: 20141201
  Transmission Date: 20150529
  Serious: Yes (Hospitalization)
  Sender: FDA-Public Use
  Company Number: CA-JNJFOC-20141114332

PATIENT
  Age: 42 Year
  Sex: Male
  Weight: 41 kg

DRUGS (1)
  1. REMICADE [Suspect]
     Active Substance: INFLIXIMAB
     Indication: CROHN^S DISEASE
     Dosage: LOADING DOSE WEEKS 0,2,6 AND ONCE EVERY 8 WEEKS
     Route: 042
     Dates: start: 20140826

REACTIONS (2)
  - Vomiting [Unknown]
  - Dehydration [Unknown]

NARRATIVE: CASE EVENT DATE: 20141112
